FAERS Safety Report 20725352 (Version 1)
Quarter: 2022Q2

REPORT INFORMATION
  Report Type: Spontaneous
  Country: US (occurrence: None)
  Receive Date: 20220419
  Receipt Date: 20220419
  Transmission Date: 20220721
  Serious: No
  Sender: FDA-Public Use
  Company Number: None

PATIENT
  Age: 66 Year
  Sex: Female
  Weight: 144 kg

DRUGS (11)
  1. DULAGLUTIDE [Suspect]
     Active Substance: DULAGLUTIDE
     Dosage: FREQUENCY : WEEKLY;?
     Route: 058
  2. AMLODIPINE [Concomitant]
     Active Substance: AMLODIPINE BESYLATE
  3. BENAZEPRIL [Concomitant]
     Active Substance: BENAZEPRIL HYDROCHLORIDE
  4. GLIMEPIRIDE [Concomitant]
     Active Substance: GLIMEPIRIDE
  5. HYDROCHLOROTHIAZIDE [Concomitant]
     Active Substance: HYDROCHLOROTHIAZIDE
  6. LETROZOLE [Concomitant]
     Active Substance: LETROZOLE
  7. IBUPROFEN [Concomitant]
     Active Substance: IBUPROFEN
  8. LORATADINE [Concomitant]
     Active Substance: LORATADINE
  9. NITROFURANTOIN [Concomitant]
     Active Substance: NITROFURANTOIN
  10. METHIMAZOLE [Concomitant]
     Active Substance: METHIMAZOLE
  11. METOPROLOL [Concomitant]
     Active Substance: METOPROLOL

REACTIONS (3)
  - Cholecystitis acute [None]
  - Hepatic steatosis [None]
  - Cerebrovascular accident [None]

NARRATIVE: CASE EVENT DATE: 20220415
